FAERS Safety Report 9280375 (Version 2)
Quarter: 2013Q2

REPORT INFORMATION
  Report Type: Spontaneous
  Country: CN (occurrence: CN)
  Receive Date: 20130509
  Receipt Date: 20130603
  Transmission Date: 20140414
  Serious: Yes (Life-Threatening, Other)
  Sender: FDA-Public Use
  Company Number: CN-ROCHE-1222924

PATIENT
  Age: 47 Year
  Sex: Male

DRUGS (1)
  1. PEGASYS [Suspect]
     Indication: HEPATITIS B
     Route: 065

REACTIONS (5)
  - Syncope [Recovered/Resolved]
  - Platelet count decreased [Recovering/Resolving]
  - Haemorrhage intracranial [Unknown]
  - Head injury [Unknown]
  - Coma [Recovered/Resolved]
